FAERS Safety Report 6218701-1 (Version None)
Quarter: 2009Q2

REPORT INFORMATION
  Report Type: 
  Country: None (occurrence: None)
  Receive Date: 20090608
  Receipt Date: 20090525
  Transmission Date: 20091009
  Serious: Yes (Other)
  Sender: FDA-Public Use
  Company Number: TR-AMGEN-UK223709

PATIENT
  Age: 6 Year
  Sex: Female

DRUGS (2)
  1. NEUPOGEN [Suspect]
     Indication: PERIPHERAL BLOOD STEM CELL APHERESIS
     Route: 058
  2. PARACETAMOL [Suspect]
     Route: 065

REACTIONS (3)
  - BONE PAIN [None]
  - DRUG INTERACTION [None]
  - RHABDOMYOLYSIS [None]
